FAERS Safety Report 19187912 (Version 1)
Quarter: 2021Q2

REPORT INFORMATION
  Report Type: Spontaneous
  Country: US (occurrence: US)
  Receive Date: 20210426
  Receipt Date: 20210426
  Transmission Date: 20210717
  Serious: Yes (Hospitalization)
  Sender: FDA-Public Use
  Company Number: None

PATIENT
  Age: 52 Year
  Sex: Female

DRUGS (12)
  1. AZITHROMYCIN ANHYDROUS. [Concomitant]
     Active Substance: AZITHROMYCIN ANHYDROUS
  2. DICYCLOMINE [Concomitant]
     Active Substance: DICYCLOMINE HYDROCHLORIDE
  3. VENLAFAXINE [Concomitant]
     Active Substance: VENLAFAXINE HYDROCHLORIDE
  4. ICATIBANT [Suspect]
     Active Substance: ICATIBANT ACETATE
     Indication: COMPLEMENT FACTOR ABNORMAL
     Dosage: ?          OTHER FREQUENCY:Q5HR?3DOS 24HR;?
     Route: 058
     Dates: start: 20200221
  5. CLONZEPAM [Concomitant]
     Active Substance: CLONAZEPAM
  6. FLUCONAZOLE. [Concomitant]
     Active Substance: FLUCONAZOLE
  7. ROSUVASTATIN. [Concomitant]
     Active Substance: ROSUVASTATIN
  8. ARIPRAZOLE [Concomitant]
     Active Substance: ARIPIPRAZOLE
  9. LEVOTHROXIN [Concomitant]
  10. METHYLPRED [Concomitant]
     Active Substance: METHYLPREDNISOLONE
  11. DOXYCYCL HYC [Concomitant]
  12. POT CHLROIDE ER [Concomitant]

REACTIONS (1)
  - Drug delivery system issue [None]

NARRATIVE: CASE EVENT DATE: 20210423
